FAERS Safety Report 22072083 (Version 1)
Quarter: 2023Q1

REPORT INFORMATION
  Report Type: Spontaneous
  Country: AU (occurrence: AU)
  Receive Date: 20230308
  Receipt Date: 20230308
  Transmission Date: 20230417
  Serious: Yes (Other)
  Sender: FDA-Public Use
  Company Number: AU-NOVEN PHARMACEUTICALS, INC.-2023-NOV-AU000207

PATIENT
  Sex: Female

DRUGS (3)
  1. ESTRADIOL [Suspect]
     Active Substance: ESTRADIOL
     Indication: Gender reassignment therapy
     Dosage: UNKNOWN
     Route: 065
  2. SPIRONOLACTONE [Suspect]
     Active Substance: SPIRONOLACTONE
     Indication: Gender reassignment therapy
     Dosage: UNKNOWN
     Route: 065
  3. CYPROTERONE ACETATE [Suspect]
     Active Substance: CYPROTERONE ACETATE
     Indication: Gender reassignment therapy
     Dosage: UNKNOWN
     Route: 065

REACTIONS (1)
  - Meningioma [Unknown]
